FAERS Safety Report 7308125 (Version 2)
Quarter: 2013Q3

REPORT INFORMATION
  Report Type: Report from Study
  Country: NL (occurrence: NL)
  Receive Date: 20100308
  Receipt Date: 20130813
  Transmission Date: 20140515
  Serious: Yes (Hospitalization)
  Sender: FDA-Public Use
  Company Number: NL-ROCHE-687801

PATIENT
  Age: 60 Year
  Sex: 0

DRUGS (3)
  1. CAPECITABINE [Suspect]
     Indication: GASTRIC CANCER
     Dosage: PER PROTOCOL.
     Route: 048
  2. EPIRUBICIN [Suspect]
     Indication: GASTRIC CANCER
     Dosage: PER PROTOCOL.
     Route: 042
  3. CISPLATIN [Suspect]
     Indication: GASTRIC CANCER
     Dosage: PER PROTOCOL.
     Route: 042

REACTIONS (1)
  - Pancreatitis acute [Recovered/Resolved]
